FAERS Safety Report 6391867-9 (Version None)
Quarter: 2009Q4

REPORT INFORMATION
  Report Type: 
  Country: None (occurrence: None)
  Receive Date: 20091007
  Receipt Date: 20090928
  Transmission Date: 20100525
  Serious: No
  Sender: FDA-Public Use
  Company Number: US-ELI_LILLY_AND_COMPANY-US200908006113

PATIENT
  Sex: Female

DRUGS (2)
  1. FORTEO [Suspect]
  2. FOSAMAX [Concomitant]

REACTIONS (1)
  - NO ADVERSE EVENT [None]
